FAERS Safety Report 7364399-9 (Version None)
Quarter: 2011Q1

REPORT INFORMATION
  Report Type: 
  Country: None (occurrence: None)
  Receive Date: 20110321
  Receipt Date: 20110309
  Transmission Date: 20110831
  Serious: Yes (Other)
  Sender: FDA-Public Use
  Company Number: DE-JNJFOC-20110306774

PATIENT
  Sex: Female

DRUGS (4)
  1. VINCRISTINE [Suspect]
     Indication: DRUG EXPOSURE DURING PREGNANCY
     Route: 042
  2. PREDNISOLONE [Suspect]
     Indication: DRUG EXPOSURE DURING PREGNANCY
     Route: 048
  3. DOXORUBICIN HCL [Suspect]
     Indication: DRUG EXPOSURE DURING PREGNANCY
     Route: 042
  4. RITUXIMAB [Suspect]
     Indication: DRUG EXPOSURE DURING PREGNANCY
     Route: 065

REACTIONS (1)
  - PREMATURE BABY [None]
